FAERS Safety Report 6091386-3 (Version None)
Quarter: 2009Q1

REPORT INFORMATION
  Report Type: 
  Country: None (occurrence: None)
  Receive Date: 20090225
  Receipt Date: 20081124
  Transmission Date: 20090719
  Serious: No
  Sender: FDA-Public Use
  Company Number: A0757887A

PATIENT
  Age: 51 Year
  Sex: Female

DRUGS (7)
  1. VERAMYST [Suspect]
     Indication: SINUS DISORDER
     Dosage: 2SPR PER DAY
     Route: 045
     Dates: start: 20081112, end: 20081121
  2. ADVAIR DISKUS 100/50 [Concomitant]
  3. ZYFLO [Concomitant]
  4. XOPENEX [Concomitant]
  5. PULMICORT-100 [Concomitant]
  6. ACTONEL [Concomitant]
  7. PRILOSEC [Concomitant]

REACTIONS (4)
  - MYDRIASIS [None]
  - OCULAR DISCOMFORT [None]
  - PHOTOPHOBIA [None]
  - STRABISMUS [None]
